FAERS Safety Report 5801518-7 (Version None)
Quarter: 2008Q3

REPORT INFORMATION
  Report Type: 
  Country: None (occurrence: None)
  Receive Date: 20080707
  Receipt Date: 20080627
  Transmission Date: 20090109
  Serious: Yes (Other)
  Sender: FDA-Public Use
  Company Number: US-ABBOTT-08P-163-0460116-00

PATIENT
  Sex: Male

DRUGS (1)
  1. VICODIN [Suspect]
     Indication: PAIN
     Route: 048
     Dates: start: 20060101, end: 20080501

REACTIONS (4)
  - ABDOMINAL PAIN [None]
  - AORTIC ANEURYSM [None]
  - CONSTIPATION [None]
  - DRUG DEPENDENCE [None]
